FAERS Safety Report 11094871 (Version 1)
Quarter: 2015Q2

REPORT INFORMATION
  Report Type: Spontaneous
  Country: CH (occurrence: FR)
  Receive Date: 20150506
  Receipt Date: 20150506
  Transmission Date: 20150821
  Serious: Yes (Life-Threatening)
  Sender: FDA-Public Use
  Company Number: CH-LPDUSPRD-20150282

PATIENT
  Age: 64 Year
  Sex: Male

DRUGS (1)
  1. VENOFER [Suspect]
     Active Substance: IRON SUCROSE
     Indication: RENAL FAILURE
     Dosage: 1 DOSAGE FORM, 1 IN 1 TOTAL
     Route: 041
     Dates: start: 20150328, end: 20150328

REACTIONS (4)
  - Malaise [Unknown]
  - Cyanosis [Unknown]
  - Apparent death [Unknown]
  - Off label use [Unknown]

NARRATIVE: CASE EVENT DATE: 20150328
